FAERS Safety Report 10069693 (Version 2)
Quarter: 2014Q2

REPORT INFORMATION
  Report Type: Spontaneous
  Country: US (occurrence: US)
  Receive Date: 20140410
  Receipt Date: 20140410
  Transmission Date: 20141212
  Serious: Yes (Hospitalization, Other)
  Sender: FDA-Public Use
  Company Number: US-MERCK-1109USA01065

PATIENT
  Age: 79 Year
  Sex: Male
  Weight: 105.67 kg

DRUGS (2)
  1. DECADRON [Suspect]
     Indication: PLASMA CELL MYELOMA
     Dosage: 40 MG, QW
     Route: 042
     Dates: start: 20101230, end: 20110602
  2. VELCADE [Suspect]
     Indication: PLASMA CELL MYELOMA
     Dosage: 1.4 MG, ON DAY 1,4,8,11
     Route: 042
     Dates: start: 20101230, end: 20110602

REACTIONS (3)
  - Cerebrovascular accident [Recovered/Resolved]
  - Respiratory failure [Unknown]
  - Generalised oedema [Unknown]
